FAERS Safety Report 4382809-6 (Version None)
Quarter: 2004Q2

REPORT INFORMATION
  Report Type: 
  Country: None (occurrence: None)
  Receive Date: 20040617
  Receipt Date: 20040610
  Transmission Date: 20050107
  Serious: Yes (Hospitalization)
  Sender: FDA-Public Use
  Company Number: TPA2004A00714

PATIENT
  Age: 36 Year
  Sex: Female
  Weight: 93.8946 kg

DRUGS (11)
  1. ACTOS [Suspect]
     Indication: DIABETES MELLITUS NON-INSULIN-DEPENDENT
     Dosage: 45 MG, 1 IN  1 D, PER ORAL
     Route: 048
  2. GLUCOPHAGE [Concomitant]
  3. AMBIEN [Concomitant]
  4. BUSPAR [Concomitant]
  5. CLONAZEPAM [Concomitant]
  6. LEXAPRO [Concomitant]
  7. LEVBID (HYOSCYAMINE SULFATE) [Concomitant]
  8. TIGAN (TRIMETHOBENAZAMIDE HYDROCHLORIDE) [Concomitant]
  9. ESTRACE [Concomitant]
  10. LORTAB [Concomitant]
  11. DARVOCET [Concomitant]

REACTIONS (3)
  - FIBROMYALGIA [None]
  - HYSTERECTOMY [None]
  - INTERVERTEBRAL DISC PROTRUSION [None]
